FAERS Safety Report 23963481 (Version 1)
Quarter: 2024Q2

REPORT INFORMATION
  Report Type: Other
  Country: US (occurrence: None)
  Receive Date: 20240611
  Receipt Date: 20240611
  Transmission Date: 20240716
  Serious: Yes (Hospitalization, Other)
  Sender: FDA-Public Use
  Company Number: US-ROCHE-3577989

PATIENT
  Age: 70 Year
  Sex: Female

DRUGS (2)
  1. VABYSMO [Suspect]
     Active Substance: FARICIMAB\FARICIMAB-SVOA
     Indication: Diabetic retinopathy
     Dosage: COULD BE IN EITHER EYE BUT MOSTLY RIGHT EYE
     Route: 031
  2. VABYSMO [Suspect]
     Active Substance: FARICIMAB\FARICIMAB-SVOA
     Indication: Macular oedema

REACTIONS (7)
  - Nephrolithiasis [Recovered/Resolved]
  - Blindness [Recovered/Resolved]
  - Discomfort [Unknown]
  - Vision blurred [Recovered/Resolved]
  - Vitreous haemorrhage [Recovered/Resolved]
  - Vitreous floaters [Recovered/Resolved]
  - Off label use [Unknown]

NARRATIVE: CASE EVENT DATE: 20240301
